FAERS Safety Report 9984357 (Version 1)
Quarter: 2014Q1

REPORT INFORMATION
  Report Type: Report from Study
  Country: US (occurrence: US)
  Receive Date: 20140307
  Receipt Date: 20140307
  Transmission Date: 20141002
  Serious: No
  Sender: FDA-Public Use
  Company Number: US-ABBVIE-13P-163-1182660-00

PATIENT
  Age: 29 Year
  Sex: Male

DRUGS (4)
  1. HUMIRA [Suspect]
     Indication: CROHN^S DISEASE
     Dates: start: 20131022
  2. METHOTREXATE [Concomitant]
     Indication: PRODUCT USED FOR UNKNOWN INDICATION
  3. LIALDA [Concomitant]
     Indication: PRODUCT USED FOR UNKNOWN INDICATION
  4. VIT D [Concomitant]
     Indication: PRODUCT USED FOR UNKNOWN INDICATION

REACTIONS (5)
  - Cough [Not Recovered/Not Resolved]
  - Nasal congestion [Not Recovered/Not Resolved]
  - Pyrexia [Not Recovered/Not Resolved]
  - Crohn^s disease [Not Recovered/Not Resolved]
  - Nasopharyngitis [Not Recovered/Not Resolved]
